FAERS Safety Report 6212990-5 (Version None)
Quarter: 2009Q2

REPORT INFORMATION
  Report Type: 
  Country: None (occurrence: None)
  Receive Date: 20090601
  Receipt Date: 20090520
  Transmission Date: 20091009
  Serious: Yes (Hospitalization)
  Sender: FDA-Public Use
  Company Number: 2009AL003454

PATIENT
  Age: 6 Year
  Sex: Male

DRUGS (2)
  1. SERTRALINE HYDROCHLORIDE [Suspect]
  2. DEXTROMETHORPHAN HYDROBROMIDE [Concomitant]

REACTIONS (2)
  - OVERDOSE [None]
  - SEROTONIN SYNDROME [None]
